FAERS Safety Report 10019040 (Version 1)
Quarter: 2014Q1

REPORT INFORMATION
  Report Type: Spontaneous
  Country: US (occurrence: None)
  Receive Date: 20140314
  Receipt Date: 20140314
  Transmission Date: 20141002
  Serious: Yes (Hospitalization)
  Sender: FDA-Public Use
  Company Number: None

PATIENT
  Age: 66 Year
  Sex: Male
  Weight: 84 kg

DRUGS (13)
  1. CYCLOPHOSPHAMIDE [Suspect]
  2. VINCRISTINE [Suspect]
  3. ENTERIC COATED ASPIRIN [Concomitant]
  4. HYDROCHLOROTHIAZIDE [Concomitant]
  5. HYDROCORTISONE [Concomitant]
  6. LIDEX [Concomitant]
  7. LOSARTAN [Concomitant]
  8. METOPROLOL [Concomitant]
  9. NAPROXEN [Concomitant]
  10. POTASSIUM CHLORIDE [Concomitant]
  11. RANITIDINE [Concomitant]
  12. TAMSULOSIN [Concomitant]
  13. VITAMIN B12 [Concomitant]

REACTIONS (9)
  - Inappropriate antidiuretic hormone secretion [None]
  - Hypovolaemia [None]
  - Hypokalaemia [None]
  - Hypocalcaemia [None]
  - Hyperglycaemia [None]
  - Hypophosphataemia [None]
  - Tachycardia [None]
  - Bone pain [None]
  - Disease progression [None]
